FAERS Safety Report 5186294-6 (Version None)
Quarter: 2006Q4

REPORT INFORMATION
  Report Type: 
  Country: None (occurrence: None)
  Receive Date: 20061220
  Receipt Date: 20061213
  Transmission Date: 20070319
  Serious: Yes (Other)
  Sender: FDA-Public Use
  Company Number: JP-JNJFOC-20061202745

PATIENT
  Sex: Female
  Weight: 60 kg

DRUGS (10)
  1. LEVOFLOXACIN [Suspect]
     Indication: PYELONEPHRITIS
     Route: 048
     Dates: start: 20061021, end: 20061023
  2. URSO [Concomitant]
     Indication: HEPATITIS
     Route: 048
  3. PURSENNID [Concomitant]
     Indication: CONSTIPATION
     Route: 048
  4. ADALAT [Concomitant]
     Indication: HYPERTENSION
     Route: 048
  5. NU-LOTAN [Concomitant]
     Indication: HYPERTENSION
     Route: 065
  6. PARIET [Concomitant]
     Indication: REFLUX OESOPHAGITIS
     Route: 048
  7. ASPIRIN [Concomitant]
     Indication: ANGINA PECTORIS
     Route: 048
  8. LENDORMIN [Concomitant]
     Indication: INSOMNIA
     Route: 048
  9. NITRODERM [Concomitant]
     Indication: ANGINA PECTORIS
     Route: 062
  10. BIOFERMIN [Concomitant]
     Indication: GASTROINTESTINAL DISORDER
     Route: 048

REACTIONS (2)
  - HYPOALBUMINAEMIA [None]
  - OEDEMA [None]
